FAERS Safety Report 16624264 (Version 3)
Quarter: 2019Q3

REPORT INFORMATION
  Report Type: Spontaneous
  Country: JP (occurrence: JP)
  Receive Date: 20190724
  Receipt Date: 20190829
  Transmission Date: 20191004
  Serious: Yes (Death)
  Sender: FDA-Public Use
  Company Number: JP-ROCHE-2362070

PATIENT

DRUGS (3)
  1. AVASTIN [Suspect]
     Active Substance: BEVACIZUMAB
     Indication: BREAST CANCER
     Route: 041
  2. ERIBULIN MESILATE [Suspect]
     Active Substance: ERIBULIN
     Indication: BREAST CANCER
     Route: 041
  3. PACLITAXEL. [Concomitant]
     Active Substance: PACLITAXEL
     Indication: BREAST CANCER
     Dosage: DOSAGE IS UNCERTAIN.
     Route: 041

REACTIONS (1)
  - Pseudocirrhosis [Fatal]
